FAERS Safety Report 8579251-0 (Version None)
Quarter: 2012Q3

REPORT INFORMATION
  Report Type: 
  Country: None (occurrence: None)
  Receive Date: 20120731
  Receipt Date: 20120731
  Transmission Date: 20120928
  Serious: Yes (Other)
  Sender: FDA-Public Use
  Company Number: None

PATIENT
  Sex: Female

DRUGS (3)
  1. BIRTH CONTROL [Concomitant]
  2. DESOGESTREL AND ETHINYL ESTRADIOL [Concomitant]
  3. CIPROFLOXACIN [Suspect]
     Indication: CYSTITIS
     Dosage: 500 MG TWICE A DAY PO
     Route: 048
     Dates: start: 20120706, end: 20120713

REACTIONS (2)
  - TENDONITIS [None]
  - EPICONDYLITIS [None]
